FAERS Safety Report 5529435-0 (Version None)
Quarter: 2007Q4

REPORT INFORMATION
  Report Type: 
  Country: None (occurrence: None)
  Receive Date: 20071129
  Receipt Date: 20071122
  Transmission Date: 20080405
  Serious: Yes (Hospitalization, Other)
  Sender: FDA-Public Use
  Company Number: GB-WYE-G00661107

PATIENT
  Sex: Female
  Weight: 81 kg

DRUGS (3)
  1. TEMSIROLIMUS [Suspect]
     Indication: RENAL CANCER METASTATIC
     Dosage: 10ML
     Route: 042
  2. CO-CODAMOL [Concomitant]
     Dosage: 2 TABLETS AS REQUIRED
     Route: 048
     Dates: start: 20070801
  3. DEXAMETHASONE [Concomitant]
     Route: 048
     Dates: start: 20070901

REACTIONS (2)
  - ANAPHYLACTIC REACTION [None]
  - DIZZINESS [None]
